FAERS Safety Report 14796705 (Version 2)
Quarter: 2018Q3

REPORT INFORMATION
  Report Type: Spontaneous
  Country: US (occurrence: US)
  Receive Date: 20180423
  Receipt Date: 20180723
  Transmission Date: 20181010
  Serious: No
  Sender: FDA-Public Use
  Company Number: US-AMGEN-USASP2018048941

PATIENT
  Sex: Female

DRUGS (1)
  1. REPATHA [Suspect]
     Active Substance: EVOLOCUMAB
     Indication: BLOOD CHOLESTEROL INCREASED
     Dosage: UNK
     Route: 065

REACTIONS (22)
  - Neuralgia [Unknown]
  - Dysphonia [Unknown]
  - Rhinorrhoea [Unknown]
  - Tinnitus [Not Recovered/Not Resolved]
  - Oropharyngeal pain [Unknown]
  - Chills [Unknown]
  - Lymphadenopathy [Unknown]
  - Dermatitis herpetiformis [Unknown]
  - Muscle twitching [Unknown]
  - Erythema [Recovered/Resolved]
  - Urticaria [Unknown]
  - Dry eye [Unknown]
  - Peripheral coldness [Unknown]
  - Hypoacusis [Not Recovered/Not Resolved]
  - Fatigue [Unknown]
  - Headache [Unknown]
  - Adverse drug reaction [Unknown]
  - Influenza like illness [Unknown]
  - Feeling abnormal [Unknown]
  - Dry mouth [Unknown]
  - Dysgeusia [Unknown]
  - Dizziness [Unknown]
